FAERS Safety Report 4274619-5 (Version None)
Quarter: 2004Q1

REPORT INFORMATION
  Report Type: 
  Country: None (occurrence: None)
  Receive Date: 20040120
  Receipt Date: 20040120
  Transmission Date: 20041129
  Serious: Yes (Death)
  Sender: FDA-Public Use
  Company Number: None

PATIENT
  Age: 28 Year
  Sex: Female
  Weight: 58.9676 kg

DRUGS (2)
  1. MACRODANTIN [Suspect]
     Indication: CYSTITIS
     Dosage: ONE TAB
     Dates: start: 20040114, end: 20040114
  2. MACRODANTIN [Suspect]
     Indication: PREGNANCY
     Dosage: ONE TAB
     Dates: start: 20040114, end: 20040114

REACTIONS (7)
  - ABDOMINAL PAIN [None]
  - COMPLICATIONS OF MATERNAL EXPOSURE TO THERAPEUTIC DRUGS [None]
  - DRUG EXPOSURE DURING PREGNANCY [None]
  - HAEMOLYTIC ANAEMIA [None]
  - MATERNAL DEATH AFFECTING FOETUS [None]
  - PULMONARY HAEMORRHAGE [None]
  - SHOCK [None]
